FAERS Safety Report 6911226-7 (Version None)
Quarter: 2010Q3

REPORT INFORMATION
  Report Type: 
  Country: None (occurrence: None)
  Receive Date: 20100806
  Receipt Date: 20100726
  Transmission Date: 20110219
  Serious: Yes (Other)
  Sender: FDA-Public Use
  Company Number: PHHY2010US50514

PATIENT

DRUGS (1)
  1. TEKTURNA [Suspect]

REACTIONS (1)
  - PROTEINURIA [None]
